FAERS Safety Report 9785226 (Version 1)
Quarter: 2013Q4

REPORT INFORMATION
  Report Type: Spontaneous
  Country: US (occurrence: None)
  Receive Date: 20131224
  Receipt Date: 20131224
  Transmission Date: 20140711
  Serious: Yes (Other)
  Sender: FDA-Public Use
  Company Number: 2076140

PATIENT
  Age: 27 Year
  Sex: Male
  Weight: 47.7 kg

DRUGS (8)
  1. VANCOMYCIN HCL [Suspect]
     Indication: PRODUCT USED FOR UNKNOWN INDICATION
     Dosage: 1 GRAM IN 100 ML INFUSOR BALL OVER 120 MINUTES (1 HOUR) INTRAVENOUS DRIP?
     Route: 041
     Dates: start: 20131207, end: 20131207
  2. STERILE WATER FOR INJECTION [Suspect]
     Indication: PRODUCT RECONSTITUTION ISSUE
     Dosage: UNKNOWN, OVER 120 MINUTES, 1 HOUR), INTRAVENOUS DRIP?
     Route: 041
  3. CEFEPIME [Suspect]
  4. IMIPENEM [Concomitant]
  5. PULMOZYME [Concomitant]
  6. ALBUTEROL [Concomitant]
  7. TOBRAMYCIN [Concomitant]
  8. PRIMAXIN [Concomitant]

REACTIONS (5)
  - Hypersensitivity [None]
  - Sneezing [None]
  - Cough [None]
  - Dyspnoea [None]
  - Urticaria [None]
